FAERS Safety Report 6448144-7 (Version None)
Quarter: 2009Q4

REPORT INFORMATION
  Report Type: 
  Country: None (occurrence: None)
  Receive Date: 20091120
  Receipt Date: 20091118
  Transmission Date: 20100525
  Serious: No
  Sender: FDA-Public Use
  Company Number: US-B.I. PHARMACEUTICALS,INC./RIDGEFIELD-2009-BP-12881BP

PATIENT
  Age: 59 Year
  Sex: Female

DRUGS (15)
  1. SPIRIVA [Suspect]
     Indication: CHRONIC OBSTRUCTIVE PULMONARY DISEASE
     Dosage: 18 MCG
     Route: 055
     Dates: start: 20070101
  2. ADVAIR DISKUS 100/50 [Concomitant]
     Indication: CHRONIC OBSTRUCTIVE PULMONARY DISEASE
  3. ADVAIR DISKUS 100/50 [Concomitant]
  4. DILTIAZEM CD [Concomitant]
     Dosage: 240 MG
  5. DIOVAN [Concomitant]
     Dosage: 320 MG
  6. IBUPROFEN [Concomitant]
  7. POTASSIUM CHLORIDE [Concomitant]
     Dosage: 10 MEQ
  8. TRAMADOL HCL [Concomitant]
  9. CALCIUM W/VIT [Concomitant]
     Dosage: 1200 MG
  10. MULTIVITAMIN W/CALCIUM, IRON, ZINC [Concomitant]
  11. PROVENTIL-HFA [Concomitant]
  12. ALBUTEROL [Concomitant]
  13. ALBUTEROL SULFATE AUTOHALER [Concomitant]
  14. IPRATROPIUM BROMIDE [Concomitant]
  15. MUCINEX D [Concomitant]

REACTIONS (2)
  - DRUG INEFFECTIVE [None]
  - OXYGEN SATURATION DECREASED [None]
